FAERS Safety Report 5903287-9 (Version None)
Quarter: 2008Q3

REPORT INFORMATION
  Report Type: 
  Country: None (occurrence: None)
  Receive Date: 20080930
  Receipt Date: 20080922
  Transmission Date: 20090109
  Serious: Yes (Hospitalization, Other)
  Sender: FDA-Public Use
  Company Number: A0747369A

PATIENT
  Sex: Female
  Weight: 1 kg

DRUGS (5)
  1. LAMOTRIGINE [Suspect]
     Indication: DRUG USE FOR UNKNOWN INDICATION
  2. ABILIFY [Concomitant]
     Indication: BIPOLAR DISORDER
  3. ZOLOFT [Concomitant]
     Indication: BIPOLAR DISORDER
  4. TRIHEXYPHENIDYL HCL [Concomitant]
  5. NIFEREX [Concomitant]

REACTIONS (10)
  - ACTIVATED PARTIAL THROMBOPLASTIN TIME PROLONGED [None]
  - APNOEA [None]
  - BLOOD FIBRINOGEN DECREASED [None]
  - DISSEMINATED INTRAVASCULAR COAGULATION [None]
  - DRUG EXPOSURE DURING PREGNANCY [None]
  - HAEMATOCRIT DECREASED [None]
  - HYPOTENSION [None]
  - PREMATURE BABY [None]
  - PULMONARY HAEMORRHAGE [None]
  - RESPIRATORY DISTRESS [None]
